FAERS Safety Report 6438246-3 (Version None)
Quarter: 2009Q4

REPORT INFORMATION
  Report Type: 
  Country: None (occurrence: None)
  Receive Date: 20091112
  Receipt Date: 20091106
  Transmission Date: 20100525
  Serious: Yes (Other)
  Sender: FDA-Public Use
  Company Number: GB-WYE-G04817709

PATIENT
  Age: 42 Year
  Sex: Female
  Weight: 75 kg

DRUGS (2)
  1. METHYLNALTREXONE BROMIDE [Suspect]
     Indication: INTESTINAL FUNCTIONAL DISORDER
     Dosage: 12MG (FREQUENCY UNKNOWN)
     Route: 058
     Dates: start: 20090917
  2. MS CONTIN [Concomitant]
     Route: 048
     Dates: start: 20050101

REACTIONS (8)
  - DYSARTHRIA [None]
  - EPIGASTRIC DISCOMFORT [None]
  - HYPERHIDROSIS [None]
  - MUSCLE TWITCHING [None]
  - PYREXIA [None]
  - SOMNOLENCE [None]
  - TARDIVE DYSKINESIA [None]
  - UNRESPONSIVE TO STIMULI [None]
